FAERS Safety Report 9160734 (Version 2)
Quarter: 2013Q2

REPORT INFORMATION
  Report Type: Spontaneous
  Country: JP (occurrence: JP)
  Receive Date: 20130313
  Receipt Date: 20130416
  Transmission Date: 20140414
  Serious: No
  Sender: FDA-Public Use
  Company Number: JP-ABBOTT-13X-087-1060814-00

PATIENT
  Age: 66 Year
  Sex: Male

DRUGS (2)
  1. LIPIDIL [Suspect]
     Indication: HYPERTRIGLYCERIDAEMIA
     Route: 048
     Dates: start: 20121229, end: 20130130
  2. SALOBEL [Suspect]
     Indication: HYPERURICAEMIA
     Route: 048
     Dates: start: 20100723, end: 20120130

REACTIONS (1)
  - Interstitial lung disease [Recovering/Resolving]
